FAERS Safety Report 24907695 (Version 2)
Quarter: 2025Q1

REPORT INFORMATION
  Report Type: Report from Study
  Country: EC (occurrence: EC)
  Receive Date: 20250131
  Receipt Date: 20250209
  Transmission Date: 20250409
  Serious: Yes (Other)
  Sender: NOVO NORDISK
  Company Number: EC-NOVOPROD-1355271

PATIENT
  Age: 43 Year
  Sex: Female

DRUGS (4)
  1. LYRICA [Concomitant]
     Active Substance: PREGABALIN
     Indication: Neuralgia
     Dosage: 25 MG, QD (AT NIGHT)
     Dates: start: 20241125
  2. SERTRALINE [Concomitant]
     Active Substance: SERTRALINE HYDROCHLORIDE
     Indication: Anxiety
  3. SERTRALINE [Concomitant]
     Active Substance: SERTRALINE HYDROCHLORIDE
     Indication: Depression
     Dosage: 50 MG, QD
     Dates: start: 20241125
  4. TRESIBA [Suspect]
     Active Substance: INSULIN DEGLUDEC
     Indication: Type 2 diabetes mellitus
     Dosage: 16 IU, QD
     Route: 058
     Dates: start: 20240527

REACTIONS (3)
  - Loss of consciousness [Not Recovered/Not Resolved]
  - Discomfort [Not Recovered/Not Resolved]
  - Blood glucose decreased [Not Recovered/Not Resolved]

NARRATIVE: CASE EVENT DATE: 20241101
